FAERS Safety Report 8763886 (Version 1)
Quarter: 2012Q4

REPORT INFORMATION
  Report Type: 
  Country: DE (occurrence: DE)
  Receive Date: 20120831
  Receipt Date: 20120831
  Transmission Date: 20130627
  Serious: Yes (Hospitalization)
  Sender: FDA-Public Use
  Company Number: DE-RANBAXY-2012US-59590

PATIENT
  Age: 11 Year
  Sex: Male
  Weight: 48 kg

DRUGS (10)
  1. PANTOPRAZOLE [Suspect]
     Indication: PRODUCT USED FOR UNKNOWN INDICATION
     Dosage: 40 mg, daily
     Route: 048
     Dates: start: 20120624, end: 20120815
  2. CGP 57148B [Suspect]
     Indication: ACUTE LYMPHOCYTIC LEUKAEMIA
     Dosage: 450 mg, daily
     Route: 048
     Dates: start: 20120713
  3. FUROSEMIDE [Suspect]
     Indication: PRODUCT USED FOR UNKNOWN INDICATION
     Dosage: 10 mg, bid
     Route: 065
     Dates: start: 20120809, end: 20120811
  4. TRIMETHOPRIM [Suspect]
     Indication: PRODUCT USED FOR UNKNOWN INDICATION
     Dosage: 120 mg x2
     Route: 048
  5. CYTARABINE [Suspect]
     Indication: PRODUCT USED FOR UNKNOWN INDICATION
     Dosage: 110 mg,daily
     Route: 042
     Dates: start: 20120808, end: 20120811
  6. CYTARABINE [Suspect]
     Indication: PRODUCT USED FOR UNKNOWN INDICATION
     Dosage: 110 mg,daily
     Route: 042
     Dates: start: 20120816
  7. GRANISETRON [Suspect]
     Indication: PRODUCT USED FOR UNKNOWN INDICATION
     Dosage: 3 mg,daily
     Route: 042
     Dates: start: 20120808, end: 20120811
  8. GRANISETRON [Suspect]
     Indication: PRODUCT USED FOR UNKNOWN INDICATION
     Dosage: 3 mg,daily
     Route: 042
     Dates: start: 20120816
  9. AMPHOTERICIN B [Suspect]
     Indication: PRODUCT USED FOR UNKNOWN INDICATION
     Dosage: 60 mg, q4h
     Route: 048
     Dates: start: 20120624
  10. MERCAPTOPURINE [Suspect]
     Indication: PRODUCT USED FOR UNKNOWN INDICATION
     Dosage: 87.5 mg, qd
     Route: 048
     Dates: start: 20120806

REACTIONS (2)
  - Memory impairment [Not Recovered/Not Resolved]
  - Fatigue [None]
